FAERS Safety Report 8444751-0 (Version None)
Quarter: 2012Q2

REPORT INFORMATION
  Report Type: 
  Country: None (occurrence: None)
  Receive Date: 20120323
  Receipt Date: 20110819
  Transmission Date: 20120825
  Serious: Yes (Other)
  Sender: FDA-Public Use
  Company Number: 163-21880-11082410

PATIENT
  Age: 75 Year
  Sex: Male

DRUGS (13)
  1. ASPIR-TRIN (ACETYLSALICYLIC ACID) (UNKNOWN) [Concomitant]
  2. FLOMAX (TAMSULOSIN HYDROCHLORIDE) (UNKNOWN) [Concomitant]
  3. METFORMIN HCL [Concomitant]
  4. REVLIMID [Suspect]
     Indication: MULTIPLE MYELOMA
     Dosage: 25 MG, QD X 21 DAYS Q 28 DAYS, PO
     Route: 048
     Dates: start: 20110301
  5. PRINIVIL (LISINOPRIL) (UNKNOWN) [Concomitant]
  6. SINGULAR (MONTELUKAST SODIUM) (UNKNOWN) [Concomitant]
  7. DEXAMETHASONE [Concomitant]
  8. NEXIUM [Concomitant]
  9. ZOCOR (SIMVASTATIN) (UNKNOWN) [Concomitant]
  10. ZYRTEC [Concomitant]
  11. AVANDIA (ROSIGLITAZONE MALEATE) (UNKNOWN) [Concomitant]
  12. GLIMEPIRIDE [Concomitant]
  13. HYDROCHLOROTHIAZIDE [Concomitant]

REACTIONS (1)
  - DYSPNOEA [None]
